FAERS Safety Report 19035102 (Version 6)
Quarter: 2022Q2

REPORT INFORMATION
  Report Type: Other
  Country: US (occurrence: US)
  Receive Date: 20210320
  Receipt Date: 20220518
  Transmission Date: 20220721
  Serious: Yes (Hospitalization)
  Sender: FDA-Public Use
  Company Number: US-ACORDA-ACO_167549_2021

PATIENT
  Age: 66 Year
  Sex: Female

DRUGS (4)
  1. INBRIJA [Suspect]
     Active Substance: LEVODOPA
     Indication: Parkinson^s disease
     Dosage: 84 MILLIGRAM (42MG; 2 CAPSULES) AS NEEDED NOT TO EXCEED 5 DOSES A DAY
     Dates: start: 20220410
  2. INBRIJA [Suspect]
     Active Substance: LEVODOPA
     Indication: On and off phenomenon
     Dosage: 84 MILLIGRAM (42MG; 2 CAPSULES) AS NEEDED NOT TO EXCEED 5 DOSES A DAY
     Dates: start: 20190914, end: 20220328
  3. GOCOVRI [Concomitant]
     Active Substance: AMANTADINE
     Indication: Parkinson^s disease
     Dosage: 274 MILLIGRAM, QD
     Route: 065
  4. CARBIDOPA\LEVODOPA [Concomitant]
     Active Substance: CARBIDOPA\LEVODOPA
     Indication: Parkinson^s disease
     Dosage: 25-100 MILLIGRAM, Q 1.5 H
     Route: 065

REACTIONS (14)
  - Back disorder [Recovered/Resolved]
  - Product physical issue [Unknown]
  - Therapeutic product effect variable [Unknown]
  - Product residue present [Unknown]
  - Therapy interrupted [Unknown]
  - Unevaluable event [Not Recovered/Not Resolved]
  - Nerve compression [Not Recovered/Not Resolved]
  - Nightmare [Unknown]
  - Tremor [Unknown]
  - Tremor [Not Recovered/Not Resolved]
  - Parkinson^s disease [Not Recovered/Not Resolved]
  - Hallucination [Unknown]
  - Cough [Unknown]
  - Sputum discoloured [Unknown]

NARRATIVE: CASE EVENT DATE: 20220329
